FAERS Safety Report 7941194-0 (Version None)
Quarter: 2011Q4

REPORT INFORMATION
  Report Type: 
  Country: None (occurrence: None)
  Receive Date: 20111122
  Receipt Date: 20111122
  Transmission Date: 20120403
  Serious: No
  Sender: FDA-Public Use
  Company Number: None

PATIENT
  Sex: Male
  Weight: 98.8842 kg

DRUGS (1)
  1. CONCERTA [Suspect]
     Indication: ATTENTION DEFICIT/HYPERACTIVITY DISORDER
     Dosage: CONCERTA 27MG 2 TABS DAILY ORAL
     Route: 048
     Dates: start: 20110101, end: 20111101

REACTIONS (2)
  - SJOGREN'S SYNDROME [None]
  - DRY EYE [None]
